FAERS Safety Report 4426584-5 (Version None)
Quarter: 2004Q3

REPORT INFORMATION
  Report Type: 
  Country: None (occurrence: None)
  Receive Date: 20040812
  Receipt Date: 20040812
  Transmission Date: 20050211
  Serious: Yes (Hospitalization)
  Sender: FDA-Public Use
  Company Number: None

PATIENT
  Age: 70 Year
  Sex: Male
  Weight: 60.2 kg

DRUGS (8)
  1. WARFARIN SODIUM [Suspect]
     Dosage: 7.5MG QD PEG
  2. SINEMET [Concomitant]
  3. CITALOPRAM [Concomitant]
  4. CLINDAMYCIN [Concomitant]
  5. FELODIPINE [Concomitant]
  6. FOSINOPRIL SODIUM [Concomitant]
  7. PERCOCET [Concomitant]
  8. KCL TAB [Concomitant]

REACTIONS (5)
  - HAEMATEMESIS [None]
  - HAEMATOCRIT DECREASED [None]
  - HAEMOGLOBIN DECREASED [None]
  - INTERNATIONAL NORMALISED RATIO INCREASED [None]
  - PYREXIA [None]
